FAERS Safety Report 9603451 (Version 2)
Quarter: 2013Q4

REPORT INFORMATION
  Report Type: Spontaneous
  Country: US (occurrence: US)
  Receive Date: 20131007
  Receipt Date: 20131007
  Transmission Date: 20140711
  Serious: Yes (Death, Hospitalization, Disabling, Other)
  Sender: FDA-Public Use
  Company Number: US-CELGENEUS-163-21880-13051933

PATIENT
  Age: 87 Year
  Sex: Female
  Weight: 53 kg

DRUGS (11)
  1. REVLIMID [Suspect]
     Indication: DIFFUSE LARGE B-CELL LYMPHOMA
     Dosage: 5 MILLIGRAM
     Route: 048
     Dates: start: 20130404, end: 20130503
  2. VICODIN [Concomitant]
     Indication: PAIN
     Route: 048
  3. OXYCONTIN [Concomitant]
     Indication: PAIN
     Dosage: 20 MILLIGRAM
     Route: 048
  4. COLACE [Concomitant]
     Indication: CONSTIPATION
     Dosage: 300 MILLIGRAM
     Route: 048
  5. DECADRON [Concomitant]
     Indication: DECREASED APPETITE
     Route: 048
  6. DECADRON [Concomitant]
     Indication: ASTHENIA
  7. ROXICODONE [Concomitant]
     Indication: PAIN
     Dosage: 30 MILLIGRAM
     Route: 048
  8. TERAZOSIN [Concomitant]
     Indication: PRODUCT USED FOR UNKNOWN INDICATION
     Dosage: 10 MILLIGRAM
     Route: 048
  9. FUCOIDAN [Concomitant]
     Indication: PRODUCT USED FOR UNKNOWN INDICATION
     Route: 065
     Dates: end: 201305
  10. OIL MARIJUANA [Concomitant]
     Indication: PRODUCT USED FOR UNKNOWN INDICATION
     Route: 048
     Dates: end: 201305
  11. RED BLOOD CELLS [Concomitant]
     Indication: PRODUCT USED FOR UNKNOWN INDICATION
     Route: 041

REACTIONS (4)
  - Death [Fatal]
  - Thrombophlebitis superficial [Recovered/Resolved]
  - Fatigue [Not Recovered/Not Resolved]
  - Diffuse large B-cell lymphoma [Not Recovered/Not Resolved]
